FAERS Safety Report 11430266 (Version 1)
Quarter: 2015Q3

REPORT INFORMATION
  Report Type: Spontaneous
  Country: US (occurrence: US)
  Receive Date: 20150828
  Receipt Date: 20150828
  Transmission Date: 20151125
  Serious: Yes (Other)
  Sender: FDA-Public Use
  Company Number: US-ROCHE-1167207

PATIENT
  Sex: Female

DRUGS (3)
  1. PEGASYS [Suspect]
     Active Substance: PEGINTERFERON ALFA-2A
     Indication: CHRONIC HEPATITIS C
     Route: 058
     Dates: start: 20121128
  2. COPEGUS [Suspect]
     Active Substance: RIBAVIRIN
     Indication: HEPATITIS C
     Dosage: DIVIDED DOSES
     Route: 065
     Dates: start: 20121128
  3. COPEGUS [Suspect]
     Active Substance: RIBAVIRIN
     Dosage: TWO DIVIDED DOSES
     Route: 048
     Dates: start: 20130315

REACTIONS (6)
  - Anxiety [Unknown]
  - Injection site bruising [Unknown]
  - Depression [Unknown]
  - Pyrexia [Unknown]
  - Incorrect dose administered [Unknown]
  - Chills [Unknown]
